FAERS Safety Report 15777585 (Version 1)
Quarter: 2018Q4

REPORT INFORMATION
  Report Type: Spontaneous
  Country: PL (occurrence: PL)
  Receive Date: 20181231
  Receipt Date: 20181231
  Transmission Date: 20190205
  Serious: Yes (Other)
  Sender: FDA-Public Use
  Company Number: PL-HONG KONG KING-FRIEND INDUSTRIAL COMPANY-2018NKF00003

PATIENT
  Age: 70 Year
  Sex: Female
  Weight: 77 kg

DRUGS (3)
  1. CARBOPLATIN. [Suspect]
     Active Substance: CARBOPLATIN
     Indication: LUNG NEOPLASM MALIGNANT
     Dosage: 300 MG/M2, ONCE
     Route: 065
  2. ANTIHYPERTENSIVE AGENTS [Concomitant]
     Route: 065
  3. TRANQUILIZING AGENT [Concomitant]
     Route: 065

REACTIONS (2)
  - Cardiotoxicity [Recovered/Resolved]
  - Acute myocardial infarction [Recovered/Resolved]
